FAERS Safety Report 13190332 (Version 3)
Quarter: 2018Q2

REPORT INFORMATION
  Report Type: Spontaneous
  Country: JP (occurrence: JP)
  Receive Date: 20170206
  Receipt Date: 20180608
  Transmission Date: 20180711
  Serious: Yes (Hospitalization, Other)
  Sender: FDA-Public Use
  Company Number: JP-MALLINCKRODT-T201505164

PATIENT
  Age: 63 Year
  Sex: Male
  Weight: 65 kg

DRUGS (44)
  1. METHADONE [Suspect]
     Active Substance: METHADONE HYDROCHLORIDE
     Indication: CANCER PAIN
     Dosage: 10 MG ONE TIME DOSE (30 MG DAILY DOSE)
     Route: 048
     Dates: start: 20150914, end: 20150929
  2. GLUCOSE [Concomitant]
     Active Substance: DEXTROSE
     Dosage: 600 ML
     Route: 051
     Dates: start: 20160202, end: 20160202
  3. POLARAMINE [Concomitant]
     Active Substance: DEXCHLORPHENIRAMINE MALEATE
     Dosage: 5 MG
     Route: 051
     Dates: start: 20160202, end: 20160202
  4. ALOXI [Concomitant]
     Active Substance: PALONOSETRON HYDROCHLORIDE
     Indication: PRODUCT USED FOR UNKNOWN INDICATION
     Dosage: 0.75 MG
     Route: 051
     Dates: start: 20151102, end: 20151102
  5. LOXOPROFEN SODIUM [Concomitant]
     Active Substance: LOXOPROFEN SODIUM
     Indication: ANALGESIC THERAPY
     Dosage: 180 MG
     Route: 048
     Dates: start: 20151027
  6. GLUCOSE [Concomitant]
     Active Substance: DEXTROSE
     Dosage: 1000 ML
     Route: 051
     Dates: start: 20151117, end: 20151117
  7. POLARAMINE [Concomitant]
     Active Substance: DEXCHLORPHENIRAMINE MALEATE
     Indication: PRODUCT USED FOR UNKNOWN INDICATION
     Dosage: 5 MG
     Route: 051
     Dates: start: 20151102, end: 20151102
  8. ALOXI [Concomitant]
     Active Substance: PALONOSETRON HYDROCHLORIDE
     Dosage: 0.75 MG
     Route: 051
     Dates: start: 20160202, end: 20160202
  9. ELPLAT [Concomitant]
     Active Substance: OXALIPLATIN
     Indication: PRODUCT USED FOR UNKNOWN INDICATION
     Dosage: 140 MG
     Route: 051
     Dates: start: 20151102, end: 20151102
  10. 5-FU [Concomitant]
     Active Substance: FLUOROURACIL
     Indication: PRODUCT USED FOR UNKNOWN INDICATION
     Dosage: 700 MG
     Route: 051
     Dates: start: 20151102, end: 20151102
  11. 5-FU [Concomitant]
     Active Substance: FLUOROURACIL
     Dosage: 700 MG
     Route: 051
     Dates: start: 20160202, end: 20160202
  12. METHADONE [Suspect]
     Active Substance: METHADONE HYDROCHLORIDE
     Dosage: 20 MG DAILY DOSE
     Route: 048
     Dates: start: 20160315
  13. ELPLAT [Concomitant]
     Active Substance: OXALIPLATIN
     Dosage: 140 MG
     Route: 051
     Dates: start: 20151117, end: 20151117
  14. ISOTONIC SODIUM CHLORIDE SOLUTION [Concomitant]
     Active Substance: SODIUM CHLORIDE
     Indication: PRODUCT USED FOR UNKNOWN INDICATION
     Dosage: 65 ML
     Route: 051
     Dates: start: 20151102, end: 20151102
  15. HEPARIN SODIUM. [Concomitant]
     Active Substance: HEPARIN SODIUM
     Dosage: 2500 IU
     Route: 051
     Dates: start: 20160202, end: 20160203
  16. LONSURF [Concomitant]
     Active Substance: TIPIRACIL HYDROCHLORIDE\TRIFLURIDINE
     Indication: PRODUCT USED FOR UNKNOWN INDICATION
     Dosage: 120 MG
     Route: 048
     Dates: end: 20150916
  17. ELPLAT [Concomitant]
     Active Substance: OXALIPLATIN
     Dosage: 140 MG
     Route: 051
     Dates: start: 20160202, end: 20160202
  18. 5-FU [Concomitant]
     Active Substance: FLUOROURACIL
     Dosage: 2100 MG
     Route: 051
     Dates: start: 20160202, end: 20160202
  19. METHADONE [Suspect]
     Active Substance: METHADONE HYDROCHLORIDE
     Dosage: 35 MG DAILY DOSE
     Route: 048
     Dates: start: 20150929, end: 20151227
  20. METHADONE [Suspect]
     Active Substance: METHADONE HYDROCHLORIDE
     Dosage: 10 MG ONE TIME DOSE (30 MG DAILY DOSE)
     Route: 048
     Dates: start: 20151228, end: 20160111
  21. GLUCOSE [Concomitant]
     Active Substance: DEXTROSE
     Indication: PRODUCT USED FOR UNKNOWN INDICATION
     Dosage: 1000 ML
     Route: 051
     Dates: start: 20151102, end: 20151102
  22. ISOVORIN [Concomitant]
     Active Substance: LEUCOVORIN CALCIUM
     Indication: PRODUCT USED FOR UNKNOWN INDICATION
     Dosage: 350 MG
     Route: 051
     Dates: start: 20151102, end: 20151102
  23. ISOVORIN [Concomitant]
     Active Substance: LEUCOVORIN CALCIUM
     Dosage: 350 MG
     Route: 051
     Dates: start: 20160202, end: 20160202
  24. ISOTONIC SODIUM CHLORIDE SOLUTION [Concomitant]
     Active Substance: SODIUM CHLORIDE
     Dosage: 65 ML
     Route: 051
     Dates: start: 20151117, end: 20151117
  25. 5-FU [Concomitant]
     Active Substance: FLUOROURACIL
     Dosage: 700 MG
     Route: 051
     Dates: start: 20151117, end: 20151117
  26. HEPARIN SODIUM. [Concomitant]
     Active Substance: HEPARIN SODIUM
     Indication: PRODUCT USED FOR UNKNOWN INDICATION
     Dosage: 2500 IU
     Route: 051
     Dates: start: 20151102, end: 20151103
  27. METHADONE [Suspect]
     Active Substance: METHADONE HYDROCHLORIDE
     Dosage: 5 MG ONE TIME DOSE (15 MG DAILY DOSE)
     Route: 048
     Dates: start: 20160112, end: 20160314
  28. LYRICA [Concomitant]
     Active Substance: PREGABALIN
     Dosage: 50 MG
     Route: 048
     Dates: start: 20160301
  29. DEXART [Concomitant]
     Active Substance: DEXAMETHASONE SODIUM PHOSPHATE
     Indication: PRODUCT USED FOR UNKNOWN INDICATION
     Dosage: 6.6 MG
     Route: 051
     Dates: start: 20151102, end: 20151102
  30. DEXART [Concomitant]
     Active Substance: DEXAMETHASONE SODIUM PHOSPHATE
     Dosage: 6.6 MG
     Route: 051
     Dates: start: 20151117, end: 20151117
  31. DEXART [Concomitant]
     Active Substance: DEXAMETHASONE SODIUM PHOSPHATE
     Dosage: 6.6 MG
     Route: 051
     Dates: start: 20160202, end: 20160202
  32. ALOXI [Concomitant]
     Active Substance: PALONOSETRON HYDROCHLORIDE
     Dosage: 0.75 MG
     Route: 051
     Dates: start: 20151117, end: 20151117
  33. ISOVORIN [Concomitant]
     Active Substance: LEUCOVORIN CALCIUM
     Dosage: 350 MG
     Route: 051
     Dates: start: 20151117, end: 20151117
  34. LIDOCAINE. [Concomitant]
     Active Substance: LIDOCAINE
     Indication: ANALGESIC THERAPY
     Dosage: 10 ML
     Route: 051
     Dates: start: 20151111, end: 20151111
  35. OXYNORM [Concomitant]
     Active Substance: OXYCODONE HYDROCHLORIDE
     Indication: ANALGESIC THERAPY
     Dosage: 10 MG, PRN
     Route: 048
     Dates: start: 20150913
  36. LYRICA [Concomitant]
     Active Substance: PREGABALIN
     Indication: ANALGESIC THERAPY
     Dosage: 150 MG
     Route: 048
     Dates: end: 20150918
  37. 5-FU [Concomitant]
     Active Substance: FLUOROURACIL
     Dosage: 2100 MG
     Route: 051
     Dates: start: 20151117, end: 20151118
  38. LEVOFLOXACIN. [Concomitant]
     Active Substance: LEVOFLOXACIN
     Indication: PRODUCT USED FOR UNKNOWN INDICATION
     Dosage: 500 MG
     Route: 048
     Dates: start: 20150918, end: 20150925
  39. NEXIUM [Concomitant]
     Active Substance: ESOMEPRAZOLE MAGNESIUM
     Indication: PRODUCT USED FOR UNKNOWN INDICATION
     Dosage: 20 MG
     Route: 048
     Dates: start: 20151110
  40. POLARAMINE [Concomitant]
     Active Substance: DEXCHLORPHENIRAMINE MALEATE
     Dosage: 5 MG
     Route: 051
     Dates: start: 20151117, end: 20151117
  41. ISOTONIC SODIUM CHLORIDE SOLUTION [Concomitant]
     Active Substance: SODIUM CHLORIDE
     Dosage: 200 ML
     Route: 051
     Dates: start: 20151211, end: 20151217
  42. 5-FU [Concomitant]
     Active Substance: FLUOROURACIL
     Dosage: 2100 MG
     Route: 051
     Dates: start: 20151102, end: 20151103
  43. HEPARIN SODIUM. [Concomitant]
     Active Substance: HEPARIN SODIUM
     Dosage: 2500 IU
     Route: 051
     Dates: start: 20151117, end: 20151118
  44. LINOLOSAL [Concomitant]
     Active Substance: BETAMETHASONE SODIUM PHOSPHATE
     Indication: ANALGESIC THERAPY
     Dosage: 2 MG
     Route: 051
     Dates: start: 20151111, end: 20151111

REACTIONS (12)
  - Skin erosion [Not Recovered/Not Resolved]
  - Dehydration [Recovered/Resolved]
  - Cough [Not Recovered/Not Resolved]
  - Constipation [Recovering/Resolving]
  - Pneumonia pneumococcal [Recovering/Resolving]
  - Pneumonia [Recovering/Resolving]
  - Somnolence [Recovered/Resolved]
  - Nausea [Recovering/Resolving]
  - Pyrexia [Recovered/Resolved]
  - Dehydration [Recovered/Resolved]
  - Pneumonia [Recovered/Resolved]
  - Neutrophil count decreased [Recovered/Resolved]

NARRATIVE: CASE EVENT DATE: 20150915
